FAERS Safety Report 9307733 (Version 4)
Quarter: 2013Q3

REPORT INFORMATION
  Report Type: Spontaneous
  Country: DK (occurrence: DK)
  Receive Date: 20130524
  Receipt Date: 20130819
  Transmission Date: 20140515
  Serious: Yes (Hospitalization)
  Sender: FDA-Public Use
  Company Number: DK-CELGENEUS-044-21880-13052001

PATIENT
  Age: 67 Year
  Sex: Female
  Weight: 49 kg

DRUGS (42)
  1. REVLIMID [Suspect]
     Indication: PLASMA CELL MYELOMA
     Route: 048
     Dates: start: 20130508, end: 20130519
  2. DEXAMETHASONE [Suspect]
     Indication: PLASMA CELL MYELOMA
     Route: 048
     Dates: start: 20130508
  3. DEXAMETHASONE [Suspect]
     Route: 048
     Dates: start: 20130417, end: 20130421
  4. DEXAMETHASONE [Suspect]
     Route: 048
     Dates: start: 20130605
  5. DEXAMETHASONE [Suspect]
     Route: 048
     Dates: start: 20130418, end: 20130418
  6. MLN9708/PLACEBO [Suspect]
     Indication: PLASMA CELL MYELOMA
     Route: 048
     Dates: start: 20130508, end: 20130521
  7. MLN9708/PLACEBO [Suspect]
     Route: 048
     Dates: start: 20130605
  8. EMPERAL [Concomitant]
     Indication: PRODUCT USED FOR UNKNOWN INDICATION
     Route: 065
  9. MOVICOL [Concomitant]
     Indication: PRODUCT USED FOR UNKNOWN INDICATION
     Route: 048
  10. UNIKALK FORTE [Concomitant]
     Indication: PRODUCT USED FOR UNKNOWN INDICATION
     Route: 048
  11. HJERTEMAGNYL [Concomitant]
     Indication: PRODUCT USED FOR UNKNOWN INDICATION
     Route: 065
  12. FURIX [Concomitant]
     Indication: PRODUCT USED FOR UNKNOWN INDICATION
     Route: 041
  13. ALLOPURINOL [Concomitant]
     Indication: GOUT
     Route: 065
     Dates: start: 20130508, end: 20130605
  14. OXYCONTIN [Concomitant]
     Indication: PRODUCT USED FOR UNKNOWN INDICATION
     Route: 065
  15. OXYNORM [Concomitant]
     Indication: PRODUCT USED FOR UNKNOWN INDICATION
     Route: 048
  16. OXYNORM [Concomitant]
     Route: 065
     Dates: start: 20130416
  17. PINEX ACTAVIS [Concomitant]
     Indication: PRODUCT USED FOR UNKNOWN INDICATION
     Route: 065
  18. IMIGRAN [Concomitant]
     Indication: PRODUCT USED FOR UNKNOWN INDICATION
     Dosage: 100 MILLIGRAM
     Route: 048
  19. PARACETAMOL [Concomitant]
     Indication: PAIN
     Route: 048
     Dates: start: 20130418
  20. ACETYLSALICYLIC ACID [Concomitant]
     Indication: ANTICOAGULANT THERAPY
     Route: 048
     Dates: start: 20130508, end: 20130528
  21. OXYCODON [Concomitant]
     Indication: PAIN
     Route: 048
     Dates: start: 20130508, end: 20130605
  22. OXYCODON [Concomitant]
     Route: 048
     Dates: start: 20130416, end: 20130610
  23. OXYCODON [Concomitant]
     Route: 048
     Dates: start: 20130610
  24. METOCLOPRAMIDE [Concomitant]
     Indication: NAUSEA
     Route: 065
     Dates: start: 20130503
  25. METOCLOPRAMIDE [Concomitant]
     Route: 065
     Dates: start: 20130608, end: 20130610
  26. FUROSEMIDE [Concomitant]
     Indication: DIURETIC THERAPY
     Route: 065
     Dates: start: 20130509, end: 20130605
  27. MACROGOL [Concomitant]
     Indication: CONSTIPATION
     Route: 048
     Dates: start: 20130510
  28. BISACODYL [Concomitant]
     Indication: CONSTIPATION
     Route: 065
     Dates: start: 20130512, end: 20130513
  29. ACICLOVIR [Concomitant]
     Indication: HERPES ZOSTER
     Route: 065
     Dates: start: 20130515, end: 20130605
  30. PIPERACILLIN [Concomitant]
     Indication: PNEUMONIA
     Dosage: 4G+0.5G
     Route: 050
     Dates: start: 20130520, end: 20130521
  31. PIPERACILLIN [Concomitant]
     Dosage: 12G+1.5G
     Route: 050
     Dates: start: 20130521, end: 20130523
  32. FENOTEROL [Concomitant]
     Indication: LUNG DISORDER
     Route: 055
     Dates: start: 20130520, end: 20130605
  33. GENTAMICIN [Concomitant]
     Indication: PNEUMONIA
     Route: 050
     Dates: start: 20130520, end: 20130521
  34. TIOTROPIUM BROMIDE [Concomitant]
     Indication: CHRONIC OBSTRUCTIVE PULMONARY DISEASE
     Route: 055
     Dates: start: 20130520, end: 20130605
  35. TIOTROPIUM BROMIDE [Concomitant]
     Indication: LUNG DISORDER
     Route: 050
     Dates: start: 20130521, end: 20130605
  36. TIOTROPIUM BROMIDE [Concomitant]
     Indication: CHRONIC OBSTRUCTIVE PULMONARY DISEASE
     Route: 050
     Dates: start: 20130605, end: 20130610
  37. TIOTROPIUM BROMIDE [Concomitant]
     Route: 050
     Dates: start: 20130610
  38. METHYLPREDNISOLONE [Concomitant]
     Indication: STEROID THERAPY
     Route: 050
     Dates: start: 20130520, end: 20130521
  39. METHYLPREDNISOLONE [Concomitant]
     Route: 050
     Dates: start: 20130608, end: 20130609
  40. PREDNISOLONE [Concomitant]
     Indication: STEROID THERAPY
     Route: 065
     Dates: start: 20130521, end: 20130528
  41. PREDNISOLONE [Concomitant]
     Route: 065
     Dates: start: 20130608, end: 20130619
  42. DALTEPARIN [Concomitant]
     Indication: PROPHYLAXIS
     Route: 050
     Dates: start: 20130521, end: 20130522

REACTIONS (3)
  - Dyspnoea [Recovered/Resolved]
  - Hypercalcaemia [Recovered/Resolved]
  - Dyspnoea [Recovered/Resolved]
